FAERS Safety Report 20229628 (Version 4)
Quarter: 2022Q2

REPORT INFORMATION
  Report Type: Spontaneous
  Country: FR (occurrence: FR)
  Receive Date: 20211226
  Receipt Date: 20220408
  Transmission Date: 20220720
  Serious: Yes (Other)
  Sender: FDA-Public Use
  Company Number: FR-BAYER-2021A272452

PATIENT
  Age: 83 Year
  Sex: Female

DRUGS (3)
  1. XARELTO [Suspect]
     Active Substance: RIVAROXABAN
     Indication: Arrhythmia prophylaxis
     Dosage: 20 MG
     Route: 048
     Dates: start: 20160102
  2. XARELTO [Suspect]
     Active Substance: RIVAROXABAN
     Indication: Prophylaxis
     Route: 048
  3. FLECAINIDE [Concomitant]
     Active Substance: FLECAINIDE
     Dosage: UNK
     Dates: start: 20160102, end: 201709

REACTIONS (3)
  - Hyperbilirubinaemia [Unknown]
  - Ocular icterus [Not Recovered/Not Resolved]
  - Jaundice [Not Recovered/Not Resolved]

NARRATIVE: CASE EVENT DATE: 20190101
